FAERS Safety Report 7470002-X (Version None)
Quarter: 2011Q2

REPORT INFORMATION
  Report Type: 
  Country: None (occurrence: None)
  Receive Date: 20110506
  Receipt Date: 20110506
  Transmission Date: 20111010
  Serious: No
  Sender: FDA-Public Use
  Company Number: None

PATIENT
  Age: 71 Year
  Sex: Male
  Weight: 86 kg

DRUGS (2)
  1. FENTANYL [Suspect]
     Indication: SEDATION
     Dosage: 100 MCG ONCE IV
     Route: 042
     Dates: start: 20110316, end: 20110316
  2. OMEPRAZOLE [Suspect]
     Indication: GASTROOESOPHAGEAL REFLUX DISEASE
     Dosage: 40 MG BID PO
     Route: 048
     Dates: start: 20110316, end: 20110316

REACTIONS (3)
  - ANGIOEDEMA [None]
  - NO THERAPEUTIC RESPONSE [None]
  - RESTLESSNESS [None]
